FAERS Safety Report 9128398 (Version 1)
Quarter: 2013Q1

REPORT INFORMATION
  Report Type: Spontaneous
  Country: US (occurrence: US)
  Receive Date: 20130228
  Receipt Date: 20130228
  Transmission Date: 20140127
  Serious: No
  Sender: FDA-Public Use
  Company Number: US-ABBOTT-12P-163-1022891-00

PATIENT
  Sex: Male
  Weight: 95.34 kg

DRUGS (2)
  1. ANDROGEL [Suspect]
     Indication: BLOOD TESTOSTERONE DECREASED
     Dosage: 3 PUMPS PER DAY
     Dates: start: 201211
  2. ANDROGEL [Suspect]
     Dosage: 6 PUMPS PER DAY
     Dates: start: 201111, end: 201211

REACTIONS (1)
  - Constipation [Unknown]
